FAERS Safety Report 10053677 (Version 1)
Quarter: 2014Q2

REPORT INFORMATION
  Report Type: Spontaneous
  Country: NZ (occurrence: NZ)
  Receive Date: 20140402
  Receipt Date: 20140402
  Transmission Date: 20141212
  Serious: Yes (Other)
  Sender: FDA-Public Use
  Company Number: NZ-BAXTER-2014BAX016296

PATIENT
  Sex: 0

DRUGS (2)
  1. ARTISS [Suspect]
     Indication: PTERYGIUM OPERATION
     Route: 065
  2. ARTISS [Suspect]
     Indication: OFF LABEL USE

REACTIONS (3)
  - Drug ineffective [Recovered/Resolved]
  - Graft complication [Recovered/Resolved]
  - No adverse event [Recovered/Resolved]
